FAERS Safety Report 4841791-5 (Version None)
Quarter: 2005Q4

REPORT INFORMATION
  Report Type: 
  Country: None (occurrence: None)
  Receive Date: 20051130
  Receipt Date: 20000908
  Transmission Date: 20060501
  Serious: Yes (Other)
  Sender: FDA-Public Use
  Company Number: ES-ROCHE-244645

PATIENT
  Age: 37 Year
  Sex: Male
  Weight: 64.4 kg

DRUGS (5)
  1. INTERFERON ALFA-2A [Suspect]
     Route: 058
     Dates: start: 20000719, end: 20000901
  2. RIBAVIRIN [Suspect]
     Dosage: WITH FOOD.
     Route: 048
     Dates: start: 20000719, end: 20000901
  3. DDI [Concomitant]
     Dosage: RESTARTED ON 08 SEP 2000 AT 150 MG BID.
     Dates: start: 19990515
  4. D4T [Concomitant]
     Dates: start: 19990515, end: 20000901
  5. NELFINAVIR [Concomitant]
     Dates: start: 19990515, end: 20000901

REACTIONS (3)
  - COAGULOPATHY [None]
  - HEPATIC FAILURE [None]
  - HEPATOMEGALY [None]
